FAERS Safety Report 18705416 (Version 3)
Quarter: 2021Q1

REPORT INFORMATION
  Report Type: Spontaneous
  Country: US (occurrence: US)
  Receive Date: 20210106
  Receipt Date: 20210108
  Transmission Date: 20210419
  Serious: Yes (Other)
  Sender: FDA-Public Use
  Company Number: US-SA-2021SA003160

PATIENT

DRUGS (1)
  1. SOLIQUA 100/33 [Suspect]
     Active Substance: INSULIN GLARGINE\LIXISENATIDE
     Indication: TYPE 2 DIABETES MELLITUS
     Dosage: 32 IU, QD
     Dates: start: 2019

REACTIONS (3)
  - Injection site pain [Unknown]
  - Cerebrovascular accident [Unknown]
  - Arthropod sting [Unknown]

NARRATIVE: CASE EVENT DATE: 2019
